FAERS Safety Report 15978361 (Version 2)
Quarter: 2019Q2

REPORT INFORMATION
  Report Type: Report from Study
  Country: None (occurrence: US)
  Receive Date: 20190219
  Receipt Date: 20190611
  Transmission Date: 20190711
  Serious: Yes (Hospitalization, Other)
  Sender: FDA-Public Use
  Company Number: US-ABBVIE-18K-163-2588957-00

PATIENT
  Sex: Male

DRUGS (1)
  1. HUMIRA [Suspect]
     Active Substance: ADALIMUMAB
     Indication: HIDRADENITIS
     Route: 058

REACTIONS (8)
  - Anaemia [Recovering/Resolving]
  - Diabetes mellitus [Unknown]
  - Myocardial infarction [Recovering/Resolving]
  - Renal impairment [Recovering/Resolving]
  - Hidradenitis [Recovering/Resolving]
  - Loss of consciousness [Unknown]
  - Haemorrhage [Recovering/Resolving]
  - Diarrhoea [Recovering/Resolving]
